FAERS Safety Report 10325974 (Version 2)
Quarter: 2015Q1

REPORT INFORMATION
  Report Type: Other
  Country: None (occurrence: US)
  Receive Date: 20140720
  Receipt Date: 20150205
  Transmission Date: 20150720
  Serious: Yes (Hospitalization, Other)
  Sender: FDA-Public Use
  Company Number: US-GSKPPD-2014GSK024143

PATIENT
  Age: 61 Year
  Sex: Male

DRUGS (7)
  1. ZAROXOLYN [Concomitant]
     Active Substance: METOLAZONE
  2. DIGOXIN. [Concomitant]
     Active Substance: DIGOXIN
  3. COREG [Concomitant]
     Active Substance: CARVEDILOL
  4. LASIX [Concomitant]
     Active Substance: FUROSEMIDE
  5. CAPTOPRIL. [Concomitant]
     Active Substance: CAPTOPRIL
  6. AVANDIA [Suspect]
     Active Substance: ROSIGLITAZONE MALEATE
     Indication: DIABETES MELLITUS
     Dosage: DATES OF AVANDIA USE COULD NOT BE CONFIRMED IN RECORDS REVIEWED.
     Route: 048
  7. COUMADIN [Concomitant]
     Active Substance: WARFARIN SODIUM

REACTIONS (2)
  - Cardiac failure congestive [Unknown]
  - Chest pain [Unknown]

NARRATIVE: CASE EVENT DATE: 20030909
